FAERS Safety Report 7224763-5 (Version None)
Quarter: 2011Q1

REPORT INFORMATION
  Report Type: 
  Country: None (occurrence: None)
  Receive Date: 20110106
  Receipt Date: 20110106
  Transmission Date: 20110831
  Serious: Yes (Hospitalization, Other)
  Sender: FDA-Public Use
  Company Number: None

PATIENT
  Age: 62 Year
  Sex: Female
  Weight: 83.9154 kg

DRUGS (5)
  1. IRON [Concomitant]
  2. WHOLE BLOOD [Concomitant]
  3. AVELOX [Suspect]
     Indication: BRONCHITIS
     Dosage: 1PILL TWICE DAILY
     Dates: start: 20101111, end: 20101120
  4. AVELOX [Suspect]
     Indication: PNEUMONIA
     Dosage: 1PILL TWICE DAILY
     Dates: start: 20101111, end: 20101120
  5. HEPARIN [Concomitant]

REACTIONS (2)
  - RENAL FAILURE [None]
  - HAEMATURIA [None]
